FAERS Safety Report 16096968 (Version 1)
Quarter: 2019Q1

REPORT INFORMATION
  Report Type: Spontaneous
  Country: FR (occurrence: FR)
  Receive Date: 20190320
  Receipt Date: 20190320
  Transmission Date: 20190418
  Serious: Yes (Hospitalization)
  Sender: FDA-Public Use
  Company Number: FR-009507513-1903FRA007949

PATIENT
  Age: 11 Year
  Sex: Female

DRUGS (3)
  1. AERIUS (DESLORATADINE) [Suspect]
     Active Substance: DESLORATADINE
     Indication: PRODUCT USED FOR UNKNOWN INDICATION
     Route: 048
     Dates: start: 20190102, end: 20190116
  2. AUGMENTIN [Suspect]
     Active Substance: AMOXICILLIN\CLAVULANATE POTASSIUM
     Indication: IMPETIGO
     Dosage: UNK
     Route: 048
     Dates: start: 20190102, end: 20190109
  3. ACETAMINOPHEN. [Suspect]
     Active Substance: ACETAMINOPHEN
     Dosage: UNK
     Route: 048
     Dates: start: 20190102

REACTIONS (8)
  - Rash maculo-papular [Recovering/Resolving]
  - Enanthema [Recovering/Resolving]
  - Transaminases increased [Recovering/Resolving]
  - Hyperthermia [Recovered/Resolved]
  - Shock [Recovered/Resolved]
  - Eosinophil count increased [Not Recovered/Not Resolved]
  - Thrombocytopenia [Recovering/Resolving]
  - Skin exfoliation [Recovering/Resolving]

NARRATIVE: CASE EVENT DATE: 20190112
